FAERS Safety Report 24686024 (Version 1)
Quarter: 2024Q4

REPORT INFORMATION
  Report Type: Spontaneous
  Country: CN (occurrence: CN)
  Receive Date: 20241202
  Receipt Date: 20241202
  Transmission Date: 20250114
  Serious: Yes (Hospitalization, Other)
  Sender: BAYER HEALTHCARE PHARMACEUTICALS INC.
  Company Number: CN-BAYER-2024A167977

PATIENT
  Age: 72 Year
  Sex: Male
  Weight: 55 kg

DRUGS (5)
  1. KERENDIA [Suspect]
     Active Substance: FINERENONE
     Indication: Diabetic nephropathy
     Dosage: 10 MG, QD
     Route: 048
     Dates: start: 20240924, end: 20241119
  2. DORZAGLIATIN [Concomitant]
     Active Substance: DORZAGLIATIN
     Dosage: 1 DF, QD
     Route: 048
     Dates: start: 20240601, end: 20241122
  3. INSULIN DEGLUDEC\LIRAGLUTIDE [Concomitant]
     Active Substance: INSULIN DEGLUDEC\LIRAGLUTIDE
     Dosage: 10 U, HS
     Route: 058
     Dates: start: 20240601, end: 20241122
  4. DAPAGLIFLOZIN PROPANEDIOL\METFORMIN HYDROCHLORIDE [Concomitant]
     Active Substance: DAPAGLIFLOZIN PROPANEDIOL\METFORMIN HYDROCHLORIDE
     Dosage: 1 DF, QD
     Route: 048
     Dates: start: 20240601, end: 20241122
  5. ACARBOSE [Concomitant]
     Active Substance: ACARBOSE
     Dosage: 50 MG, TID
     Route: 048
     Dates: start: 20240601, end: 20241122

REACTIONS (4)
  - Dermatitis allergic [Recovering/Resolving]
  - Rash pruritic [Recovering/Resolving]
  - Scab [None]
  - Initial insomnia [Recovered/Resolved]

NARRATIVE: CASE EVENT DATE: 20241116
